FAERS Safety Report 9102811 (Version 1)
Quarter: 2013Q1

REPORT INFORMATION
  Report Type: Spontaneous
  Country: PT (occurrence: PT)
  Receive Date: 20130219
  Receipt Date: 20130219
  Transmission Date: 20140127
  Serious: Yes (Hospitalization)
  Sender: FDA-Public Use
  Company Number: PT-TEVA-386118ISR

PATIENT
  Age: 72 Year
  Sex: Male

DRUGS (7)
  1. CLOPIDOGREL [Suspect]
     Route: 048
  2. ACETYLSALICYLIC ACID [Suspect]
     Route: 048
  3. ACETYLSALICYLIC ACID [Suspect]
     Route: 048
  4. ACETYLSALICYLIC ACID [Suspect]
     Route: 048
  5. ROSUVASTATIN [Suspect]
  6. PERINDOPRIL [Suspect]
  7. CARVEDILOL [Suspect]
     Route: 048

REACTIONS (4)
  - Abdominal pain [Recovered/Resolved]
  - Diarrhoea [Recovered/Resolved]
  - Nausea [Recovered/Resolved]
  - Abdominal distension [Recovered/Resolved]
